FAERS Safety Report 6887797-6 (Version None)
Quarter: 2010Q3

REPORT INFORMATION
  Report Type: 
  Country: None (occurrence: None)
  Receive Date: 20100730
  Receipt Date: 20100716
  Transmission Date: 20110219
  Serious: Yes (Other)
  Sender: FDA-Public Use
  Company Number: PHHY2010IL47534

PATIENT
  Sex: Female

DRUGS (3)
  1. CARBAMAZEPINE [Suspect]
     Indication: CONVULSION
  2. CLONAZEPAM [Suspect]
  3. LAMOTRIGINE [Suspect]

REACTIONS (9)
  - ABDOMINAL PAIN [None]
  - APRAXIA [None]
  - ASTHENIA [None]
  - CONFUSIONAL STATE [None]
  - HEARING IMPAIRED [None]
  - LOSS OF CONSCIOUSNESS [None]
  - MYOCLONUS [None]
  - PARTIAL SEIZURES [None]
  - SUDDEN HEARING LOSS [None]
